FAERS Safety Report 10477195 (Version 1)
Quarter: 2014Q3

REPORT INFORMATION
  Report Type: Spontaneous
  Country: US (occurrence: US)
  Receive Date: 20140926
  Receipt Date: 20140926
  Transmission Date: 20150326
  Serious: Yes (Death)
  Sender: FDA-Public Use
  Company Number: US-UNITED THERAPEUTICS-UNT-2014-007846

PATIENT
  Age: 84 Year
  Sex: Female
  Weight: 65.76 kg

DRUGS (1)
  1. TYVASO [Suspect]
     Active Substance: TREPROSTINIL
     Indication: COR PULMONALE CHRONIC
     Dosage: 18 TO 54 ?G, QID
     Dates: start: 20101122

REACTIONS (1)
  - Death [Fatal]

NARRATIVE: CASE EVENT DATE: 20140913
